FAERS Safety Report 5667650-6 (Version None)
Quarter: 2008Q1

REPORT INFORMATION
  Report Type: 
  Country: None (occurrence: None)
  Receive Date: 20080315
  Receipt Date: 20080129
  Transmission Date: 20080703
  Serious: No
  Sender: FDA-Public Use
  Company Number: US-ABBOTT-08P-163-0435711-00

PATIENT
  Sex: Male
  Weight: 64.922 kg

DRUGS (12)
  1. HUMIRA [Suspect]
     Indication: CROHN'S DISEASE
     Route: 058
     Dates: start: 20080108
  2. HUMIRA [Suspect]
     Indication: CROHN'S DISEASE
     Route: 058
     Dates: start: 20070901, end: 20080108
  3. WARFARIN SODIUM [Concomitant]
     Indication: DRUG USE FOR UNKNOWN INDICATION
     Route: 048
  4. LEVOTHYROXINE SODIUM [Concomitant]
     Indication: HYPOTHYROIDISM
     Route: 048
  5. MERCAPURINE [Concomitant]
     Indication: CROHN'S DISEASE
     Route: 048
  6. CALCITRIOL [Concomitant]
     Indication: MINERAL SUPPLEMENTATION
     Route: 048
  7. PREDNISONE [Concomitant]
     Indication: CROHN'S DISEASE
     Route: 048
  8. RISEDRONATE SODIUM [Concomitant]
     Indication: RESORPTION BONE INCREASED
     Route: 048
  9. FOLIC ACID [Concomitant]
     Indication: DRUG USE FOR UNKNOWN INDICATION
     Route: 048
  10. BUDESONIDE [Concomitant]
     Indication: CROHN'S DISEASE
  11. VITAMIN CAP [Concomitant]
     Indication: VITAMIN SUPPLEMENTATION
     Route: 048
  12. NICOTINAM. W/PYRIDOXI. HCL/RIBOFL./THIAM. HCL [Concomitant]
     Indication: VITAMIN SUPPLEMENTATION

REACTIONS (2)
  - CROHN'S DISEASE [None]
  - INJECTION SITE BRUISING [None]
